FAERS Safety Report 6767728-X (Version None)
Quarter: 2010Q2

REPORT INFORMATION
  Report Type: 
  Country: None (occurrence: None)
  Receive Date: 20100614
  Receipt Date: 20100603
  Transmission Date: 20101027
  Serious: Yes (Hospitalization)
  Sender: FDA-Public Use
  Company Number: GB-ROCHE-708354

PATIENT

DRUGS (8)
  1. BEVACIZUMAB [Suspect]
     Dosage: DATE OF LAST DOSE PRIOR TO SAE: 06 APRIL 2010
     Route: 065
     Dates: start: 20100322
  2. DEXAMETHASONE [Concomitant]
     Route: 048
     Dates: start: 20100322
  3. OMEPRAZOLE [Concomitant]
     Route: 048
     Dates: start: 20100322
  4. TRAMADOL [Concomitant]
     Route: 048
     Dates: start: 20100305
  5. ORAMORPH SR [Concomitant]
     Dosage: DOSE REPORTED: 10MG/5 ML
     Route: 048
     Dates: start: 20100315
  6. MEROPENEM [Concomitant]
     Route: 042
     Dates: start: 20100408, end: 20100416
  7. TEICOPLANIN [Concomitant]
     Route: 042
     Dates: start: 20100408, end: 20100412
  8. ACYCLOVIR [Concomitant]
     Route: 042
     Dates: start: 20100408, end: 20100412

REACTIONS (5)
  - COMA [None]
  - CONFUSIONAL STATE [None]
  - HEPATIC ENCEPHALOPATHY [None]
  - INFECTION [None]
  - METASTATIC PULMONARY EMBOLISM [None]
